FAERS Safety Report 18400444 (Version 2)
Quarter: 2020Q4

REPORT INFORMATION
  Report Type: Spontaneous
  Country: DK (occurrence: DK)
  Receive Date: 20201019
  Receipt Date: 20201111
  Transmission Date: 20210114
  Serious: Yes (Life-Threatening, Hospitalization, Other)
  Sender: FDA-Public Use
  Company Number: DK-PFIZER INC-2015149475

PATIENT
  Sex: Female

DRUGS (3)
  1. MISOPROSTOL. [Suspect]
     Active Substance: MISOPROSTOL
     Indication: INDUCED LABOUR
     Dosage: 25 ?G, SINGLE
     Route: 067
  2. SYNTOCINON [Concomitant]
     Active Substance: OXYTOCIN
     Indication: INDUCED LABOUR
     Dosage: 6 ML/H (10 I.E. IN A 1000 ML NACL-SOLUTION)
     Route: 041
  3. SYNTOCINON [Concomitant]
     Active Substance: OXYTOCIN
     Dosage: 24 ML/HR, UNK
     Route: 041

REACTIONS (6)
  - Haemorrhage [Unknown]
  - Meconium in amniotic fluid [Unknown]
  - Uterine rupture [Recovered/Resolved]
  - Precipitate labour [Unknown]
  - Off label use [Recovered/Resolved]
  - Product use in unapproved indication [Unknown]
